FAERS Safety Report 19181170 (Version 6)
Quarter: 2021Q3

REPORT INFORMATION
  Report Type: Report from Study
  Country: US (occurrence: US)
  Receive Date: 20210426
  Receipt Date: 20210907
  Transmission Date: 20211014
  Serious: Yes (Life-Threatening, Hospitalization)
  Sender: FDA-Public Use
  Company Number: US-B.I. PHARMACEUTICALS,INC./RIDGEFIELD-2020-MR-031947

PATIENT
  Age: 78 Year
  Sex: Male

DRUGS (2)
  1. OFEV [Suspect]
     Active Substance: NINTEDANIB
     Indication: IDIOPATHIC PULMONARY FIBROSIS
     Dosage: 150 MG TWICE A DAY
     Route: 048
     Dates: start: 20190801
  2. OFEV [Suspect]
     Active Substance: NINTEDANIB
     Dosage: 100 MG BID
     Route: 048
     Dates: start: 20210505

REACTIONS (18)
  - Ulcer haemorrhage [Recovered/Resolved]
  - Dysphonia [Unknown]
  - Gait disturbance [Unknown]
  - Fatigue [Unknown]
  - Dyspnoea [Not Recovered/Not Resolved]
  - Faeces discoloured [Unknown]
  - Limb injury [Unknown]
  - Diarrhoea [Not Recovered/Not Resolved]
  - Cough [Unknown]
  - Diarrhoea [Recovered/Resolved]
  - Faeces discoloured [Not Recovered/Not Resolved]
  - Dizziness [Unknown]
  - Weight decreased [Unknown]
  - Gastrointestinal sounds abnormal [Not Recovered/Not Resolved]
  - Asthenia [Unknown]
  - Mucous stools [Unknown]
  - Abdominal pain upper [Recovered/Resolved]
  - Headache [Unknown]
